FAERS Safety Report 10369632 (Version 2)
Quarter: 2014Q3

REPORT INFORMATION
  Report Type: Spontaneous
  Country: US (occurrence: US)
  Receive Date: 20140807
  Receipt Date: 20140807
  Transmission Date: 20150326
  Serious: No
  Sender: FDA-Public Use
  Company Number: US-AMGEN-USASP2013052347

PATIENT
  Age: 56 Year
  Sex: Male
  Weight: 87.08 kg

DRUGS (4)
  1. DEXTROSE-SALINE [Concomitant]
     Dosage: D 5 1/2 NS 1000CC
     Dates: start: 20121130, end: 20121130
  2. NPLATE [Suspect]
     Active Substance: ROMIPLOSTIM
     Indication: IMMUNE THROMBOCYTOPENIC PURPURA
     Dosage: 1 MUG, QWK
     Route: 058
     Dates: start: 20120210
  3. LOMOTIL [Concomitant]
     Active Substance: ATROPINE SULFATE\DIPHENOXYLATE HYDROCHLORIDE
     Dosage: 2.5 MG-0.025 MG TABLET
     Route: 048
     Dates: start: 20121130
  4. KCL [Concomitant]
     Active Substance: POTASSIUM CHLORIDE
     Dosage: 20 MEQ, ONE TIME DOSE
     Dates: start: 20121130, end: 20121130

REACTIONS (2)
  - Asthenia [Recovering/Resolving]
  - Hepatic enzyme increased [Recovered/Resolved]

NARRATIVE: CASE EVENT DATE: 201306
